FAERS Safety Report 13398180 (Version 1)
Quarter: 2017Q2

REPORT INFORMATION
  Report Type: Spontaneous
  Country: GB (occurrence: GB)
  Receive Date: 20170403
  Receipt Date: 20170403
  Transmission Date: 20170830
  Serious: Yes (Other)
  Sender: FDA-Public Use
  Company Number: GB-TELIGENT, INC-IGIL20170116

PATIENT
  Age: 76 Year
  Sex: Male

DRUGS (2)
  1. POVIDONE-IODINE. [Concomitant]
     Active Substance: POVIDONE-IODINE
     Indication: PROPHYLAXIS
     Route: 061
  2. CEFUROXIME SODIUM. [Suspect]
     Active Substance: CEFUROXIME SODIUM
     Indication: PROPHYLAXIS
     Dosage: 10 MG/0.1 ML

REACTIONS (3)
  - Maculopathy [Unknown]
  - Visual acuity reduced [Unknown]
  - Ocular toxicity [Unknown]
